FAERS Safety Report 7065652-9 (Version None)
Quarter: 2010Q4

REPORT INFORMATION
  Report Type: 
  Country: None (occurrence: None)
  Receive Date: 20101022
  Receipt Date: 20101022
  Transmission Date: 20110411
  Serious: Yes (Other)
  Sender: FDA-Public Use
  Company Number: None

PATIENT
  Age: 57 Year
  Sex: Female
  Weight: 62.0067 kg

DRUGS (1)
  1. CARBOPLATIN [Suspect]
     Indication: NON-SMALL CELL LUNG CANCER METASTATIC
     Dosage: 255MG IV Q3 WEEKS
     Route: 042
     Dates: start: 20100414, end: 20101020

REACTIONS (4)
  - ERYTHEMA [None]
  - FLUSHING [None]
  - NAUSEA [None]
  - PRURITUS [None]
